FAERS Safety Report 16482980 (Version 1)
Quarter: 2019Q2

REPORT INFORMATION
  Report Type: Spontaneous
  Country: AU (occurrence: AU)
  Receive Date: 20190627
  Receipt Date: 20190627
  Transmission Date: 20190711
  Serious: Yes (Other)
  Sender: FDA-Public Use
  Company Number: AU-REGENERON PHARMACEUTICALS, INC.-2019-39025

PATIENT

DRUGS (5)
  1. EYLEA [Suspect]
     Active Substance: AFLIBERCEPT
     Dosage: OU BILATERAL
     Dates: start: 20170110, end: 20170110
  2. EYLEA [Suspect]
     Active Substance: AFLIBERCEPT
     Dosage: LAST DOSE TAKEN
     Dates: start: 20180530, end: 20180530
  3. EYLEA [Suspect]
     Active Substance: AFLIBERCEPT
     Indication: PRODUCT USED FOR UNKNOWN INDICATION
     Dosage: TOTAL OF 4 DOSES
     Dates: start: 20160906, end: 20180530
  4. EYLEA [Suspect]
     Active Substance: AFLIBERCEPT
     Dosage: OU BILATERAL
     Dates: start: 20061111, end: 20061111
  5. EYLEA [Suspect]
     Active Substance: AFLIBERCEPT
     Dosage: OU BILATERAL
     Dates: start: 20170418, end: 20170418

REACTIONS (3)
  - Glaucoma [Unknown]
  - Blindness [Unknown]
  - Inappropriate schedule of product administration [Unknown]
